FAERS Safety Report 15689157 (Version 2)
Quarter: 2019Q3

REPORT INFORMATION
  Report Type: Report from Study
  Country: TW (occurrence: TW)
  Receive Date: 20181205
  Receipt Date: 20190802
  Transmission Date: 20191004
  Serious: Yes (Other)
  Sender: FDA-Public Use
  Company Number: TW-SA-2018SA329372

PATIENT
  Age: 33 Year
  Sex: Female
  Weight: 47 kg

DRUGS (6)
  1. ISONIAZID. [Suspect]
     Active Substance: ISONIAZID
     Indication: LATENT TUBERCULOSIS
     Dosage: 15 MG/KG, QW
  2. RIFAPENTINE [Suspect]
     Active Substance: RIFAPENTINE
     Indication: LATENT TUBERCULOSIS
     Dosage: 750 MG, QW
  3. RIFAPENTINE [Suspect]
     Active Substance: RIFAPENTINE
     Dosage: 750 MG, QW
  4. ISONIAZID. [Suspect]
     Active Substance: ISONIAZID
     Dosage: 15 MG/KG, QW
  5. ISONIAZID. [Suspect]
     Active Substance: ISONIAZID
     Dosage: 15 MG/KG, QW
  6. RIFAPENTINE [Suspect]
     Active Substance: RIFAPENTINE
     Dosage: 750 MG, QW

REACTIONS (7)
  - Shock [Recovered/Resolved]
  - Nausea [Recovered/Resolved]
  - Pyrexia [Recovered/Resolved]
  - Headache [Recovered/Resolved]
  - Influenza like illness [Recovered/Resolved]
  - Malaise [Recovered/Resolved]
  - Vomiting [Recovered/Resolved]
